FAERS Safety Report 18946963 (Version 1)
Quarter: 2021Q1

REPORT INFORMATION
  Report Type: Spontaneous
  Country: US (occurrence: US)
  Receive Date: 20210227
  Receipt Date: 20210227
  Transmission Date: 20210420
  Serious: No
  Sender: FDA-Public Use
  Company Number: US-ROCHE-2516154

PATIENT
  Sex: Male

DRUGS (2)
  1. XOLAIR [Suspect]
     Active Substance: OMALIZUMAB
     Dosage: EVERY 2 WEEKS , ONGOING  YES (STRENGTH 75 MG/0.5 ML)
     Route: 058
     Dates: start: 20190821
  2. XOLAIR [Suspect]
     Active Substance: OMALIZUMAB
     Indication: ASTHMA
     Dosage: EVERY 2 WEEKS , (FORM STRENGTH 150 MG/ML)
     Route: 058
     Dates: start: 20190821

REACTIONS (2)
  - No adverse event [Unknown]
  - Drug ineffective [Unknown]
